FAERS Safety Report 7123883-3 (Version None)
Quarter: 2010Q4

REPORT INFORMATION
  Report Type: 
  Country: None (occurrence: None)
  Receive Date: 20101125
  Receipt Date: 20101113
  Transmission Date: 20110411
  Serious: Yes (Hospitalization)
  Sender: FDA-Public Use
  Company Number: CA-ELI_LILLY_AND_COMPANY-CA201008003548

PATIENT
  Age: 62 Year
  Sex: Female

DRUGS (18)
  1. FORTEO [Suspect]
     Indication: OSTEOPOROSIS
     Dosage: 20 UG, DAILY (1/D)
     Route: 058
     Dates: start: 20100513, end: 20101103
  2. IRON [Concomitant]
     Dosage: UNK, UNKNOWN
     Route: 065
  3. SYNTHROID [Concomitant]
     Dosage: UNK, UNKNOWN
     Route: 065
  4. ESTRACE [Concomitant]
     Dosage: UNK, UNKNOWN
     Route: 065
  5. CORTEF [Concomitant]
     Dosage: UNK, UNKNOWN
     Route: 065
  6. NEXIUM [Concomitant]
     Dosage: UNK, UNKNOWN
     Route: 065
  7. BIAXIN [Concomitant]
  8. LACTAID [Concomitant]
     Dosage: UNK, UNKNOWN
     Route: 065
  9. VITAMIN B-12 [Concomitant]
     Dosage: UNK, UNKNOWN
     Route: 065
  10. ADVAIR [Concomitant]
     Dosage: UNK, UNKNOWN
     Route: 065
  11. ALVESCO [Concomitant]
     Dosage: UNK, UNKNOWN
     Route: 065
  12. CALCIUM [Concomitant]
     Dosage: UNK, UNKNOWN
     Route: 066
  13. MULTI-VITAMIN [Concomitant]
     Dosage: UNK, UNKNOWN
     Route: 065
  14. VITAMIN D [Concomitant]
     Dosage: UNK, UNKNOWN
     Route: 065
  15. NOVO-HYDRAZIDE [Concomitant]
     Dosage: UNK, UNKNOWN
     Route: 065
  16. PANTOLOC                           /01263202/ [Concomitant]
  17. COUMADIN [Concomitant]
  18. CORTISONE [Concomitant]

REACTIONS (5)
  - DIARRHOEA [None]
  - DIARRHOEA HAEMORRHAGIC [None]
  - DIZZINESS [None]
  - INFLAMMATION [None]
  - NAUSEA [None]
